FAERS Safety Report 10243525 (Version 1)
Quarter: 2014Q2

REPORT INFORMATION
  Report Type: Spontaneous
  Country: US (occurrence: US)
  Receive Date: 20140618
  Receipt Date: 20140618
  Transmission Date: 20141212
  Serious: No
  Sender: FDA-Public Use
  Company Number: US-BAYER-2014-090960

PATIENT
  Age: 76 Year
  Sex: Male

DRUGS (1)
  1. ULTRAVIST [Suspect]
     Indication: COMPUTERISED TOMOGRAM
     Dosage: 100 CC, ONCE

REACTIONS (1)
  - Urticaria [Recovered/Resolved]
